FAERS Safety Report 22005870 (Version 1)
Quarter: 2023Q1

REPORT INFORMATION
  Report Type: Spontaneous
  Country: US (occurrence: None)
  Receive Date: 20230216
  Receipt Date: 20230216
  Transmission Date: 20230418
  Serious: Yes (unspecified)
  Sender: FDA-Public Use
  Company Number: None

PATIENT
  Age: 33 Year
  Sex: Female
  Weight: 87.75 kg

DRUGS (1)
  1. SYSTANE LUBRICANT [Suspect]
     Active Substance: POLYETHYLENE GLYCOL 400\PROPYLENE GLYCOL
     Indication: Dry eye
     Dosage: OTHER QUANTITY : 2 DROP(S);?FREQUENCY : 3 TIMES A DAY;?
     Route: 047
     Dates: start: 20230201, end: 20230214

REACTIONS (5)
  - Instillation site discharge [None]
  - Instillation site discomfort [None]
  - Instillation site erythema [None]
  - Instillation site irritation [None]
  - Foreign body sensation in eyes [None]

NARRATIVE: CASE EVENT DATE: 20230206
